FAERS Safety Report 5597127-8 (Version None)
Quarter: 2008Q1

REPORT INFORMATION
  Report Type: 
  Country: None (occurrence: None)
  Receive Date: 20080121
  Receipt Date: 20080107
  Transmission Date: 20080703
  Serious: Yes (Hospitalization)
  Sender: FDA-Public Use
  Company Number: GB-WYE-H02014008

PATIENT
  Age: 7 Year
  Sex: Female

DRUGS (3)
  1. IBUPROFEN [Suspect]
     Indication: ABDOMINAL PAIN
     Dosage: 150 MG
     Route: 048
  2. CEFTRIAXONE [Concomitant]
     Dosage: SINGLE 2 GRAM DOSE
     Route: 042
  3. DICLOFENAC [Suspect]
     Indication: ANALGESIA
     Dosage: 25 MG (0.83 MG/KG)
     Route: 054

REACTIONS (1)
  - RENAL FAILURE ACUTE [None]
